FAERS Safety Report 12202054 (Version 11)
Quarter: 2017Q3

REPORT INFORMATION
  Report Type: Report from Study
  Country: US (occurrence: US)
  Receive Date: 20160322
  Receipt Date: 20170918
  Transmission Date: 20171127
  Serious: Yes (Hospitalization)
  Sender: FDA-Public Use
  Company Number: US-B.I. PHARMACEUTICALS,INC./RIDGEFIELD-2016-BI-07958BP

PATIENT
  Sex: Female

DRUGS (6)
  1. ADCIRCA [Concomitant]
     Active Substance: TADALAFIL
     Indication: PRODUCT USED FOR UNKNOWN INDICATION
     Route: 065
  2. DILT-XR [Concomitant]
     Active Substance: DILTIAZEM
     Indication: PRODUCT USED FOR UNKNOWN INDICATION
     Route: 065
  3. OFEV [Suspect]
     Active Substance: NINTEDANIB
     Indication: IDIOPATHIC PULMONARY FIBROSIS
     Route: 048
     Dates: start: 20160125
  4. OFEV [Suspect]
     Active Substance: NINTEDANIB
     Indication: PULMONARY ARTERIAL HYPERTENSION
     Route: 048
  5. OFEV [Suspect]
     Active Substance: NINTEDANIB
     Route: 048
  6. DILTIAZEM. [Concomitant]
     Active Substance: DILTIAZEM
     Indication: PRODUCT USED FOR UNKNOWN INDICATION
     Route: 065

REACTIONS (21)
  - Blood sodium decreased [Unknown]
  - Productive cough [Unknown]
  - Pulmonary sepsis [Unknown]
  - Cardiac disorder [Unknown]
  - Blood potassium decreased [Unknown]
  - Contusion [Unknown]
  - Weight decreased [Unknown]
  - Diarrhoea [Recovered/Resolved]
  - Headache [Unknown]
  - Abdominal pain upper [Unknown]
  - Gallbladder disorder [Unknown]
  - Dyspnoea [Unknown]
  - Spinal disorder [Unknown]
  - Gastric disorder [Unknown]
  - Myocardial infarction [Unknown]
  - Diarrhoea [Unknown]
  - Vomiting [Unknown]
  - Dyspepsia [Unknown]
  - Transient ischaemic attack [Unknown]
  - Pancreatitis [Unknown]
  - Circulatory collapse [Unknown]
